FAERS Safety Report 7829329-1 (Version None)
Quarter: 2011Q4

REPORT INFORMATION
  Report Type: 
  Country: None (occurrence: None)
  Receive Date: 20111020
  Receipt Date: 20111010
  Transmission Date: 20120403
  Serious: Yes (Other)
  Sender: FDA-Public Use
  Company Number: US-NOVOPROD-336975

PATIENT

DRUGS (2)
  1. LEVEMIR [Suspect]
     Indication: TYPE 1 DIABETES MELLITUS
     Dosage: UNK UNK, BID
     Route: 058
     Dates: start: 20090101
  2. NOVOLOG [Suspect]
     Indication: TYPE 1 DIABETES MELLITUS
     Dosage: SLIDING SCALE
     Route: 058
     Dates: start: 20090101

REACTIONS (5)
  - INJECTION SITE PAIN [None]
  - CEREBROVASCULAR ACCIDENT [None]
  - INJECTION SITE HAEMATOMA [None]
  - DYSPNOEA [None]
  - BLOOD GLUCOSE INCREASED [None]
